FAERS Safety Report 6288343-0 (Version None)
Quarter: 2009Q3

REPORT INFORMATION
  Report Type: 
  Country: None (occurrence: None)
  Receive Date: 20090729
  Receipt Date: 20090724
  Transmission Date: 20100115
  Serious: Yes (Death)
  Sender: FDA-Public Use
  Company Number: PHHY2009DE31021

PATIENT
  Age: 68 Year
  Sex: Female
  Weight: 53 kg

DRUGS (8)
  1. CLOZAPINE [Suspect]
     Route: 048
  2. RIVASTIGMIN [Suspect]
     Dosage: 3 MG, BID
  3. STALEVO 100 [Suspect]
     Dosage: 6X100 MG
  4. CARBIDOPA [Suspect]
     Dosage: 200 MG/DAY
  5. DOMPERIDONE [Suspect]
     Dosage: 10 MG/DAY
  6. OMEPRAZOL [Suspect]
     Dosage: 1 DF DAILY
  7. PIPAMPERONE [Suspect]
     Dosage: 40 MG/DAY
  8. VALPROIC ACID [Suspect]
     Dosage: 300 MG, BID

REACTIONS (1)
  - SUBILEUS [None]
